FAERS Safety Report 13999049 (Version 2)
Quarter: 2023Q2

REPORT INFORMATION
  Report Type: Spontaneous
  Country: FR (occurrence: FR)
  Receive Date: 20170922
  Receipt Date: 20230616
  Transmission Date: 20230722
  Serious: Yes (Hospitalization, Other)
  Sender: FDA-Public Use
  Company Number: FR-GLAXOSMITHKLINE-FR2017GSK145806

PATIENT

DRUGS (13)
  1. ALBUTEROL [Suspect]
     Active Substance: ALBUTEROL
     Indication: Asthma
     Dosage: 1 DF, Z
     Route: 055
     Dates: start: 201708
  2. BOTOX [Suspect]
     Active Substance: ONABOTULINUMTOXINA
     Indication: Anal incontinence
     Dosage: 500 DF, Z
     Route: 030
     Dates: start: 201201
  3. SINGULAIR [Suspect]
     Active Substance: MONTELUKAST SODIUM
     Indication: Asthma
     Dosage: 100 MG, 1D
     Route: 048
     Dates: start: 2015
  4. FLUCONAZOLE [Suspect]
     Active Substance: FLUCONAZOLE
     Indication: Fungal infection
     Dosage: UNK (UNK (DESC DOSE: 50 MOUTHWASHES))
     Route: 065
     Dates: start: 201708
  5. OXALIPLATIN [Suspect]
     Active Substance: OXALIPLATIN
     Indication: Rectal cancer
     Dosage: 50 MG, CYC
     Route: 042
     Dates: start: 2006, end: 2006
  6. PULMICORT TURBUHALER [Suspect]
     Active Substance: BUDESONIDE
     Indication: Chronic obstructive pulmonary disease
     Dosage: 200 UG, BID (400.0 ?G)
     Route: 055
     Dates: start: 2015
  7. POTASSIUM CHLORIDE [Suspect]
     Active Substance: POTASSIUM CHLORIDE
     Indication: Hypokalaemia
     Dosage: 2 MG
     Route: 048
     Dates: start: 201708
  8. XELODA [Suspect]
     Active Substance: CAPECITABINE
     Indication: Rectal cancer
     Dosage: 825 MG/M2, CYC
     Route: 048
     Dates: start: 2006, end: 2006
  9. GLYCOPYRRONIUM\INDACATEROL [Suspect]
     Active Substance: GLYCOPYRRONIUM\INDACATEROL
     Indication: Chronic obstructive pulmonary disease
     Dosage: 1 DF, 1D, 85 MCG/43 MCG
     Route: 055
     Dates: start: 201708
  10. THEOPHYLLINE [Suspect]
     Active Substance: THEOPHYLLINE
     Indication: Chronic obstructive pulmonary disease
     Dosage: 2 DF (300MG)
     Route: 048
     Dates: start: 2015
  11. THEOPHYLLINE [Suspect]
     Active Substance: THEOPHYLLINE
     Dosage: 300 MG (DAILY DOSE: 600.0 MG))
     Route: 048
  12. BUMETANIDE [Suspect]
     Active Substance: BUMETANIDE
     Indication: Hypertension
     Dosage: 5 MG, 1D
     Route: 048
     Dates: start: 201708
  13. PREDNISONE [Suspect]
     Active Substance: PREDNISONE
     Indication: Chronic obstructive pulmonary disease
     Dosage: 12 MG, QD (DAILY DOSE: 12.0 MG)
     Route: 048
     Dates: start: 201708

REACTIONS (6)
  - Dilated cardiomyopathy [Not Recovered/Not Resolved]
  - Arteriosclerosis coronary artery [Not Recovered/Not Resolved]
  - Ejection fraction decreased [Not Recovered/Not Resolved]
  - Product use in unapproved indication [Unknown]
  - Product prescribing issue [Unknown]
  - Overdose [Unknown]

NARRATIVE: CASE EVENT DATE: 20170801
